FAERS Safety Report 6686868-7 (Version None)
Quarter: 2010Q2

REPORT INFORMATION
  Report Type: 
  Country: None (occurrence: None)
  Receive Date: 20100414
  Receipt Date: 20100409
  Transmission Date: 20101027
  Serious: Yes (Other)
  Sender: FDA-Public Use
  Company Number: IT-1181163

PATIENT
  Age: 56 Year
  Sex: Female

DRUGS (1)
  1. AZOPT      (BRINZOLAMIDE) 1% OPTHALMIC SUSPENSION EYE DROPS, [Suspect]
     Dosage: OPTHALMIC
     Route: 047
     Dates: start: 20090901, end: 20091009

REACTIONS (3)
  - ALANINE AMINOTRANSFERASE INCREASED [None]
  - ASPARTATE AMINOTRANSFERASE INCREASED [None]
  - LIVER FUNCTION TEST ABNORMAL [None]
